FAERS Safety Report 11070531 (Version 2)
Quarter: 2015Q2

REPORT INFORMATION
  Report Type: Report from Study
  Country: US (occurrence: US)
  Receive Date: 20150427
  Receipt Date: 20150526
  Transmission Date: 20150821
  Serious: Yes (Hospitalization)
  Sender: FDA-Public Use
  Company Number: US-ACTELION-A-NJ2015-116726

PATIENT
  Age: 83 Year
  Sex: Female

DRUGS (15)
  1. CYMBALTA [Concomitant]
     Active Substance: DULOXETINE HYDROCHLORIDE
  2. SPIRONOLACTONE. [Concomitant]
     Active Substance: SPIRONOLACTONE
  3. BONIVA [Concomitant]
     Active Substance: IBANDRONATE SODIUM
  4. CAPTOPRIL HCT [Concomitant]
  5. KCL [Concomitant]
     Active Substance: POTASSIUM CHLORIDE
  6. TRACLEER [Suspect]
     Active Substance: BOSENTAN\BOSENTAN MONOHYDRATE
     Indication: PULMONARY ARTERIAL HYPERTENSION
     Dosage: 62.5 MG, BID
     Route: 048
     Dates: start: 20131118
  7. AMLODIPINE [Concomitant]
     Active Substance: AMLODIPINE BESYLATE
  8. TRAVATAN [Concomitant]
     Active Substance: TRAVOPROST
  9. VITAMIN D [Concomitant]
     Active Substance: CHOLECALCIFEROL
  10. LANOXIN [Concomitant]
     Active Substance: DIGOXIN
  11. MULTIVITAMIN [Concomitant]
     Active Substance: VITAMINS
  12. METFORMIN [Concomitant]
     Active Substance: METFORMIN HYDROCHLORIDE
  13. LASIX [Concomitant]
     Active Substance: FUROSEMIDE
  14. PREDNISONE. [Concomitant]
     Active Substance: PREDNISONE
  15. ZOCOR [Concomitant]
     Active Substance: SIMVASTATIN

REACTIONS (2)
  - Cellulitis [Recovered/Resolved]
  - Bronchitis [Recovered/Resolved]

NARRATIVE: CASE EVENT DATE: 20150403
